FAERS Safety Report 4839124-3 (Version None)
Quarter: 2005Q4

REPORT INFORMATION
  Report Type: 
  Country: None (occurrence: None)
  Receive Date: 20051129
  Receipt Date: 20051121
  Transmission Date: 20060501
  Serious: Yes (Hospitalization)
  Sender: FDA-Public Use
  Company Number: IT-GLAXOSMITHKLINE-B0401673A

PATIENT
  Age: 80 Year
  Sex: Male

DRUGS (1)
  1. LANOXIN [Suspect]
     Dosage: 125MG PER DAY
     Dates: start: 20050101, end: 20050911

REACTIONS (3)
  - APHASIA [None]
  - CONFUSIONAL STATE [None]
  - THERAPEUTIC AGENT TOXICITY [None]
